FAERS Safety Report 17524820 (Version 4)
Quarter: 2021Q2

REPORT INFORMATION
  Report Type: Report from Study
  Country: DE (occurrence: DE)
  Receive Date: 20200311
  Receipt Date: 20210405
  Transmission Date: 20210716
  Serious: Yes (Other)
  Sender: FDA-Public Use
  Company Number: NVSC2020DE066426

PATIENT
  Sex: Female
  Weight: 48 kg

DRUGS (2)
  1. KISQALI [Suspect]
     Active Substance: RIBOCICLIB
     Indication: BREAST CANCER METASTATIC
     Dosage: 600 MG, QD (1X DAILY)
     Route: 048
     Dates: start: 20180928
  2. LETROZOLE. [Suspect]
     Active Substance: LETROZOLE
     Indication: BREAST CANCER METASTATIC
     Dosage: 2.5 MG, QD (1X DAILY)
     Route: 048
     Dates: start: 20180928

REACTIONS (3)
  - Hyperthyroidism [Recovered/Resolved]
  - Blood alkaline phosphatase increased [Unknown]
  - Blood urea decreased [Unknown]

NARRATIVE: CASE EVENT DATE: 20200120
